FAERS Safety Report 4433085-7 (Version None)
Quarter: 2004Q3

REPORT INFORMATION
  Report Type: 
  Country: None (occurrence: None)
  Receive Date: 20040823
  Receipt Date: 20040809
  Transmission Date: 20050211
  Serious: Yes (Other)
  Sender: FDA-Public Use
  Company Number: 138885USA

PATIENT
  Age: 57 Year
  Sex: Female

DRUGS (1)
  1. COPAXONE [Suspect]
     Indication: MULTIPLE SCLEROSIS
     Dates: start: 19990924, end: 20040514

REACTIONS (10)
  - ECCHYMOSIS [None]
  - FIBROSIS [None]
  - GLOBAL AMNESIA [None]
  - INFLAMMATION [None]
  - INJECTION SITE NECROSIS [None]
  - INJECTION SITE REACTION [None]
  - LIPOATROPHY [None]
  - NECROSIS ISCHAEMIC [None]
  - SKIN GRAFT [None]
  - SKIN ULCER [None]
